FAERS Safety Report 6106856-9 (Version None)
Quarter: 2009Q1

REPORT INFORMATION
  Report Type: 
  Country: None (occurrence: None)
  Receive Date: 20090303
  Receipt Date: 20090223
  Transmission Date: 20090719
  Serious: Yes (Other)
  Sender: FDA-Public Use
  Company Number: 2009AL001097

PATIENT
  Sex: Male

DRUGS (1)
  1. FEVERALL [Suspect]
     Dosage: 2; QID;
     Route: 054

REACTIONS (1)
  - JOINT SWELLING [None]
